FAERS Safety Report 16312112 (Version 2)
Quarter: 2019Q2

REPORT INFORMATION
  Report Type: Spontaneous
  Country: BR (occurrence: BR)
  Receive Date: 20190515
  Receipt Date: 20190527
  Transmission Date: 20190711
  Serious: Yes (Other)
  Sender: FDA-Public Use
  Company Number: BR-SA-2019SA128081

PATIENT
  Sex: Male
  Weight: 35 kg

DRUGS (5)
  1. HUMULIN NOS [Concomitant]
     Active Substance: INSULIN HUMAN
     Indication: TYPE 1 DIABETES MELLITUS
     Dosage: 6 IU IN THE MORNING, 3 IU AT LUNCH AND 3 IU AT DINNER
     Route: 058
  2. VITAMIN B12 [Suspect]
     Active Substance: CYANOCOBALAMIN
     Indication: SUPPLEMENTATION THERAPY
     Dosage: 1 DF, QD
     Route: 048
     Dates: start: 2017
  3. GLUCERNA [Suspect]
     Active Substance: AMINO ACIDS\DEXTROSE\ELECTROLYTES NOS\SOYBEAN OIL\VITAMINS
     Indication: SUPPLEMENTATION THERAPY
     Dosage: 1 DF, QD
     Route: 048
     Dates: start: 2017
  4. LANTUS [Suspect]
     Active Substance: INSULIN GLARGINE
     Indication: TYPE 1 DIABETES MELLITUS
     Dosage: 32 IU, QD
     Route: 058
  5. ENALAPRIL [Concomitant]
     Active Substance: ENALAPRIL
     Indication: RENAL DISORDER
     Dosage: 1 DF, QD
     Route: 048
     Dates: start: 2017

REACTIONS (10)
  - Product administered at inappropriate site [Unknown]
  - Multiple use of single-use product [Unknown]
  - Blood glucose fluctuation [Unknown]
  - Drug resistance [Unknown]
  - Growth retardation [Recovering/Resolving]
  - Weight gain poor [Recovering/Resolving]
  - Abnormal behaviour [Unknown]
  - Injection site pain [Recovering/Resolving]
  - Injection site inflammation [Recovering/Resolving]
  - Nervousness [Unknown]

NARRATIVE: CASE EVENT DATE: 2017
